FAERS Safety Report 23338850 (Version 1)
Quarter: 2023Q4

REPORT INFORMATION
  Report Type: Spontaneous
  Country: CN (occurrence: CN)
  Receive Date: 20231226
  Receipt Date: 20231226
  Transmission Date: 20240109
  Serious: Yes (Hospitalization)
  Sender: FDA-Public Use
  Company Number: CN-BAYER-2023A184380

PATIENT
  Age: 67 Year
  Sex: Female
  Weight: 50 kg

DRUGS (1)
  1. GLUCOBAY [Suspect]
     Active Substance: ACARBOSE
     Indication: Type 2 diabetes mellitus
     Dosage: 0.1 G, QD
     Route: 048
     Dates: start: 20231202, end: 20231204

REACTIONS (4)
  - Flatulence [Recovering/Resolving]
  - Vomiting [Recovered/Resolved]
  - Abdominal pain [Recovering/Resolving]
  - Nausea [Recovering/Resolving]

NARRATIVE: CASE EVENT DATE: 20231203
